FAERS Safety Report 7298578-6 (Version None)
Quarter: 2010Q4

REPORT INFORMATION
  Report Type: 
  Country: None (occurrence: None)
  Receive Date: 20101029
  Receipt Date: 20091204
  Transmission Date: 20110411
  Serious: Yes (Other)
  Sender: FDA-Public Use
  Company Number: 2009-4702

PATIENT
  Age: 17 Year
  Sex: Male
  Weight: 32.7 kg

DRUGS (2)
  1. INCRELEX [Suspect]
     Indication: GROWTH HORMONE DEFICIENCY
     Dosage: 22UG/KG (0.36 MG,2 IN 1 D),SUBCUTANEOUS
     Route: 058
     Dates: start: 20090730
  2. SALBUTAMOL (SALBUTAMOL) [Concomitant]

REACTIONS (2)
  - HYPOGLYCAEMIA [None]
  - LOSS OF CONSCIOUSNESS [None]
